FAERS Safety Report 11251355 (Version 1)
Quarter: 2015Q3

REPORT INFORMATION
  Report Type: Spontaneous
  Country: US (occurrence: US)
  Receive Date: 20150708
  Receipt Date: 20150708
  Transmission Date: 20151125
  Serious: Yes (Other)
  Sender: FDA-Public Use
  Company Number: US-ELI_LILLY_AND_COMPANY-US201112002584

PATIENT
  Sex: Female

DRUGS (3)
  1. LOESTRIN NOS [Concomitant]
     Active Substance: ETHINYL ESTRADIOL\NORETHINDRONE ACETATE
  2. PROZAC [Suspect]
     Active Substance: FLUOXETINE HYDROCHLORIDE
     Indication: DEPRESSION
     Dosage: UNK
     Dates: start: 20110901
  3. PHENTERMINE. [Concomitant]
     Active Substance: PHENTERMINE

REACTIONS (7)
  - Seizure like phenomena [Unknown]
  - Paraesthesia [Unknown]
  - Sensory loss [Unknown]
  - Photopsia [Unknown]
  - Nausea [Unknown]
  - Hyperhidrosis [Unknown]
  - Feeling abnormal [Unknown]
